FAERS Safety Report 21712527 (Version 2)
Quarter: 2022Q4

REPORT INFORMATION
  Report Type: Spontaneous
  Country: NZ (occurrence: NZ)
  Receive Date: 20221212
  Receipt Date: 20221220
  Transmission Date: 20230112
  Serious: Yes (Other)
  Sender: FDA-Public Use
  Company Number: NZ-MYLANLABS-2022M1135278

PATIENT
  Age: 60 Year
  Sex: Female

DRUGS (2)
  1. CELECOXIB [Interacting]
     Active Substance: CELECOXIB
     Indication: Product used for unknown indication
     Dosage: UNK
     Route: 065
  2. ACETAMINOPHEN\IBUPROFEN [Interacting]
     Active Substance: ACETAMINOPHEN\IBUPROFEN
     Indication: Product used for unknown indication
     Dosage: UNK
     Route: 065

REACTIONS (5)
  - Melaena [Unknown]
  - Abdominal pain [Unknown]
  - Dizziness [Unknown]
  - Drug interaction [Unknown]
  - Medication error [Unknown]
